APPROVED DRUG PRODUCT: DECITABINE
Active Ingredient: DECITABINE
Strength: 50MG/VIAL
Dosage Form/Route: INJECTABLE;INTRAVENOUS
Application: A206033 | Product #001 | TE Code: AP
Applicant: CHEMI SPA
Approved: Sep 22, 2017 | RLD: No | RS: No | Type: RX